FAERS Safety Report 8013996-6 (Version None)
Quarter: 2011Q4

REPORT INFORMATION
  Report Type: 
  Country: None (occurrence: None)
  Receive Date: 20111229
  Receipt Date: 20111219
  Transmission Date: 20120403
  Serious: Yes (Death, Other)
  Sender: FDA-Public Use
  Company Number: FR-TEVA-314913ISR

PATIENT
  Age: 29 Year
  Sex: Male

DRUGS (2)
  1. BEVACIZUMAB [Suspect]
     Indication: GLIOBLASTOMA
  2. IRINOTECAN HCL [Suspect]
     Indication: GLIOBLASTOMA

REACTIONS (3)
  - DRUG INEFFECTIVE [None]
  - NEOPLASM PROGRESSION [None]
  - SKIN NECROSIS [None]
